FAERS Safety Report 8975722 (Version 1)
Quarter: 2012Q4

REPORT INFORMATION
  Report Type: 
  Country: US (occurrence: US)
  Receive Date: 20121219
  Receipt Date: 20121219
  Transmission Date: 20130627
  Serious: No
  Sender: FDA-Public Use
  Company Number: US-AMGEN-USASP2012067145

PATIENT
  Age: 57 Year
  Sex: Female
  Weight: 63.04 kg

DRUGS (1)
  1. PROLIA [Suspect]
     Indication: OSTEOPOROSIS
     Dosage: 60 mg, q6mo
     Route: 058
     Dates: start: 20120928, end: 20120928

REACTIONS (10)
  - Hypersensitivity [Unknown]
  - Skin burning sensation [Recovered/Resolved]
  - Epistaxis [Recovered/Resolved]
  - Ear haemorrhage [Recovered/Resolved]
  - Pain in jaw [Recovered/Resolved]
  - Dizziness [Unknown]
  - Pain [Unknown]
  - Arthralgia [Recovered/Resolved]
  - Ear pain [Unknown]
  - Rash [Recovered/Resolved]
